FAERS Safety Report 5677617-X (Version None)
Quarter: 2008Q1

REPORT INFORMATION
  Report Type: 
  Country: None (occurrence: None)
  Receive Date: 20080318
  Receipt Date: 20080305
  Transmission Date: 20080703
  Serious: Yes (Hospitalization)
  Sender: FDA-Public Use
  Company Number: GXKR2008BR02340

PATIENT
  Age: 43 Year
  Sex: Female

DRUGS (4)
  1. PREDNISONE [Suspect]
     Indication: BEHCET'S SYNDROME
     Dosage: 60 MG, QD, ORAL; 20 MG, QD, ORAL
     Route: 048
  2. CYCLOSPORINE [Suspect]
     Indication: BEHCET'S SYNDROME
     Dates: end: 20020101
  3. DEXAMETHASONE [Suspect]
     Indication: GLIOSIS
     Dosage: 4 MG, QD, INTRAVENOUS
     Route: 042
  4. METHYLPREDNISOLONE [Suspect]
     Indication: GLIOSIS
     Dosage: 1 G, QD

REACTIONS (18)
  - AGGRESSION [None]
  - ASTHENIA [None]
  - BEHCET'S SYNDROME [None]
  - BRAIN NEOPLASM [None]
  - COMPUTERISED TOMOGRAM ABNORMAL [None]
  - CONDITION AGGRAVATED [None]
  - EYELID PTOSIS [None]
  - FACIAL PARESIS [None]
  - GLIOSIS [None]
  - HEADACHE [None]
  - HYPERPHAGIA [None]
  - MASS [None]
  - MEMORY IMPAIRMENT [None]
  - MONOPARESIS [None]
  - PHOTOPHOBIA [None]
  - PSYCHOTIC DISORDER [None]
  - SLEEP DISORDER [None]
  - SOMNOLENCE [None]
